FAERS Safety Report 25855391 (Version 1)
Quarter: 2025Q3

REPORT INFORMATION
  Report Type: Report from Study
  Country: US (occurrence: US)
  Receive Date: 20250927
  Receipt Date: 20250927
  Transmission Date: 20251021
  Serious: Yes (Hospitalization)
  Sender: SUNOVION
  Company Number: US-SUMITOMO PHARMA SWITZERLAND GMBH-2025SPA012269

PATIENT
  Age: 64 Year
  Sex: Male

DRUGS (2)
  1. ORGOVYX [Suspect]
     Active Substance: RELUGOLIX
     Indication: Prostate cancer
     Route: 048
  2. ORGOVYX [Suspect]
     Active Substance: RELUGOLIX
     Route: 048

REACTIONS (9)
  - Gastrointestinal inflammation [Unknown]
  - Poor quality sleep [Unknown]
  - Feeling cold [Unknown]
  - Cold flash [Unknown]
  - Activities of daily living decreased [Unknown]
  - Constipation [Unknown]
  - Fatigue [Unknown]
  - Hot flush [Unknown]
  - Product dose omission in error [Recovered/Resolved]
